FAERS Safety Report 14482423 (Version 1)
Quarter: 2018Q1

REPORT INFORMATION
  Report Type: Spontaneous
  Country: US (occurrence: US)
  Receive Date: 20180202
  Receipt Date: 20180202
  Transmission Date: 20180509
  Serious: Yes (Death, Hospitalization)
  Sender: FDA-Public Use
  Company Number: US-HLSUS-2018-US-000027

PATIENT
  Age: 41 Year
  Sex: Male

DRUGS (1)
  1. CLOZARIL [Suspect]
     Active Substance: CLOZAPINE
     Indication: SCHIZOAFFECTIVE DISORDER
     Dosage: 900MG/DAY
     Route: 048
     Dates: end: 2006

REACTIONS (8)
  - Cardiomegaly [Fatal]
  - Neuroleptic malignant syndrome [Unknown]
  - Dizziness [Unknown]
  - Muscular weakness [Unknown]
  - Dyspnoea [Unknown]
  - Rash [Unknown]
  - Chest pain [Unknown]
  - Constipation [Unknown]

NARRATIVE: CASE EVENT DATE: 2006
